FAERS Safety Report 5349435-3 (Version None)
Quarter: 2007Q2

REPORT INFORMATION
  Report Type: 
  Country: None (occurrence: None)
  Receive Date: 20070504
  Receipt Date: 20061120
  Transmission Date: 20071010
  Serious: Yes (Hospitalization)
  Sender: FDA-Public Use
  Company Number: PHEH2006US08289

PATIENT
  Age: 60 Year
  Sex: Female

DRUGS (5)
  1. DIOVAN HCT [Suspect]
     Indication: HYPERTENSION
     Dosage: 80MG/25MG, QD, ORAL
     Route: 048
  2. PAXIL [Concomitant]
  3. XANAX [Concomitant]
  4. PREVACID [Concomitant]
  5. ATENOLOL [Concomitant]

REACTIONS (2)
  - HEADACHE [None]
  - HYPONATRAEMIA [None]
